FAERS Safety Report 10940370 (Version 2)
Quarter: 2015Q2

REPORT INFORMATION
  Report Type: Spontaneous
  Country: US (occurrence: US)
  Receive Date: 20150322
  Receipt Date: 20150525
  Transmission Date: 20150821
  Serious: No
  Sender: FDA-Public Use
  Company Number: US-JNJFOC-20140501952

PATIENT
  Age: 53 Year
  Sex: Male
  Weight: 90.72 kg

DRUGS (15)
  1. NUCYNTA ER [Suspect]
     Active Substance: TAPENTADOL HYDROCHLORIDE
     Indication: INTERVERTEBRAL DISC DEGENERATION
     Dosage: TOOK ONE HALF A TABLET
     Route: 048
     Dates: start: 20140502
  2. NUCYNTA ER [Suspect]
     Active Substance: TAPENTADOL HYDROCHLORIDE
     Indication: PAIN
     Route: 048
     Dates: start: 20140501, end: 20140501
  3. NUCYNTA ER [Suspect]
     Active Substance: TAPENTADOL HYDROCHLORIDE
     Indication: PAIN
     Dosage: TOOK ONE HALF A TABLET
     Route: 048
     Dates: start: 20140502, end: 20140502
  4. FENTANYL. [Concomitant]
     Active Substance: FENTANYL
     Indication: PAIN
     Route: 062
     Dates: start: 2013
  5. NUCYNTA ER [Suspect]
     Active Substance: TAPENTADOL HYDROCHLORIDE
     Indication: INTERVERTEBRAL DISC DEGENERATION
     Route: 048
     Dates: start: 20140501, end: 20140501
  6. NUCYNTA ER [Suspect]
     Active Substance: TAPENTADOL HYDROCHLORIDE
     Indication: INTERVERTEBRAL DISC DEGENERATION
     Dosage: ADDED HALF A TABLET TO THE DOSE
     Route: 048
     Dates: start: 20140430, end: 20140430
  7. NUCYNTA ER [Suspect]
     Active Substance: TAPENTADOL HYDROCHLORIDE
     Indication: PAIN
     Dosage: TOOK ONE HALF A TABLET
     Route: 048
     Dates: start: 20140502
  8. NUCYNTA ER [Suspect]
     Active Substance: TAPENTADOL HYDROCHLORIDE
     Indication: SCIATIC NERVE INJURY
     Dosage: ADDED HALF A TABLET TO THE DOSE
     Route: 048
     Dates: start: 20140430, end: 20140430
  9. NUCYNTA ER [Suspect]
     Active Substance: TAPENTADOL HYDROCHLORIDE
     Indication: SCIATIC NERVE INJURY
     Dosage: TOOK ONE HALF A TABLET
     Route: 048
     Dates: start: 20140502, end: 20140502
  10. NUCYNTA ER [Suspect]
     Active Substance: TAPENTADOL HYDROCHLORIDE
     Indication: PAIN
     Dosage: ADDED HALF A TABLET TO THE DOSE
     Route: 048
     Dates: start: 20140430, end: 20140430
  11. NUCYNTA ER [Suspect]
     Active Substance: TAPENTADOL HYDROCHLORIDE
     Indication: INTERVERTEBRAL DISC DEGENERATION
     Dosage: TOOK ONE HALF A TABLET
     Route: 048
     Dates: start: 20140502, end: 20140502
  12. NUCYNTA ER [Suspect]
     Active Substance: TAPENTADOL HYDROCHLORIDE
     Indication: SCIATIC NERVE INJURY
     Dosage: TOOK ONE HALF A TABLET
     Route: 048
     Dates: start: 20140502
  13. NUCYNTA ER [Suspect]
     Active Substance: TAPENTADOL HYDROCHLORIDE
     Indication: SCIATIC NERVE INJURY
     Route: 048
     Dates: start: 20140501, end: 20140501
  14. GRALISE [Concomitant]
     Active Substance: GABAPENTIN
     Indication: NEURALGIA
     Route: 048
     Dates: start: 201403
  15. GRALISE [Concomitant]
     Active Substance: GABAPENTIN
     Indication: NEURALGIA
     Dosage: ONCE IN EVENING
     Route: 048
     Dates: start: 201403

REACTIONS (11)
  - Fatigue [Not Recovered/Not Resolved]
  - Headache [Not Recovered/Not Resolved]
  - Underdose [Unknown]
  - Irritability [Not Recovered/Not Resolved]
  - Intentional product misuse [Unknown]
  - Somnolence [Recovered/Resolved]
  - Fear [Recovered/Resolved]
  - Speech disorder [Not Recovered/Not Resolved]
  - Feeling abnormal [Not Recovered/Not Resolved]
  - Drug ineffective [Unknown]
  - Asthenopia [Recovered/Resolved]

NARRATIVE: CASE EVENT DATE: 20140430
